FAERS Safety Report 5119150-X (Version None)
Quarter: 2006Q3

REPORT INFORMATION
  Report Type: 
  Country: None (occurrence: None)
  Receive Date: 20060929
  Receipt Date: 20060929
  Transmission Date: 20061208
  Serious: Yes (Hospitalization)
  Sender: FDA-Public Use
  Company Number: None

PATIENT
  Age: 87 Year
  Sex: Male
  Weight: 61 kg

DRUGS (16)
  1. WARFARIN SODIUM [Suspect]
     Indication: ATRIAL FLUTTER
     Dosage: 5 MG DAILY PO
     Route: 048
  2. LISINOPRIL [Concomitant]
  3. METHOCARBAMOL [Concomitant]
  4. DOCUSATE [Concomitant]
  5. ASPIRIN [Concomitant]
  6. POTASSIUM CHLORIDE [Concomitant]
  7. ALENDRONATE SODIUM [Concomitant]
  8. LASIX [Concomitant]
  9. BISACODYL [Concomitant]
  10. METOPROLOL TARTRATE [Concomitant]
  11. CALCIUM CARBONATE [Concomitant]
  12. VITAMIN D [Concomitant]
  13. ROSIGLITAZONE [Concomitant]
  14. TYLENOL (CAPLET) [Concomitant]
  15. RANITIDINE [Concomitant]
  16. ALBUTEROL [Concomitant]

REACTIONS (5)
  - DYSPNOEA [None]
  - FULL BLOOD COUNT ABNORMAL [None]
  - INTERNATIONAL NORMALISED RATIO INCREASED [None]
  - PYREXIA [None]
  - TREATMENT NONCOMPLIANCE [None]
